FAERS Safety Report 15772928 (Version 1)
Quarter: 2018Q4

REPORT INFORMATION
  Report Type: Spontaneous
  Country: MY (occurrence: MY)
  Receive Date: 20181228
  Receipt Date: 20181228
  Transmission Date: 20190205
  Serious: Yes (Hospitalization)
  Sender: FDA-Public Use
  Company Number: MY-SHIRE-MY201849523

PATIENT

DRUGS (3)
  1. PREDNISOLONE. [Concomitant]
     Active Substance: PREDNISOLONE
     Indication: PRODUCT USED FOR UNKNOWN INDICATION
  2. CETRIZINE [Concomitant]
     Active Substance: CETIRIZINE HYDROCHLORIDE
     Indication: PRODUCT USED FOR UNKNOWN INDICATION
  3. IDURSULFASE [Suspect]
     Active Substance: IDURSULFASE
     Indication: MUCOPOLYSACCHARIDOSIS II
     Dosage: 12 MG, UNK
     Route: 041
     Dates: start: 20181130, end: 20181130

REACTIONS (7)
  - Cardiovascular disorder [Recovered/Resolved]
  - Livedo reticularis [Recovered/Resolved]
  - Rash [Recovered/Resolved]
  - Chills [Recovered/Resolved]
  - Pallor [Recovered/Resolved]
  - Nasopharyngitis [Recovered/Resolved]
  - Restlessness [Recovered/Resolved]

NARRATIVE: CASE EVENT DATE: 20181130
